FAERS Safety Report 7269291-6 (Version None)
Quarter: 2011Q1

REPORT INFORMATION
  Report Type: 
  Country: None (occurrence: None)
  Receive Date: 20110202
  Receipt Date: 20110125
  Transmission Date: 20110831
  Serious: Yes (Other)
  Sender: FDA-Public Use
  Company Number: US-US-EMD SERONO, INC.-7038355

PATIENT
  Sex: Female

DRUGS (3)
  1. REBIF [Suspect]
     Indication: PRODUCT USED FOR UNKNOWN INDICATION
     Route: 058
     Dates: start: 20060123, end: 20100801
  2. BACLOFEN [Concomitant]
     Indication: MUSCLE SPASMS
  3. LOVASTATIN [Concomitant]
     Indication: BLOOD CHOLESTEROL INCREASED
     Dates: start: 20100801

REACTIONS (4)
  - DIABETES MELLITUS [None]
  - HYPERTENSION [None]
  - FATIGUE [None]
  - DRUG SPECIFIC ANTIBODY PRESENT [None]
